FAERS Safety Report 4481198-6 (Version None)
Quarter: 2004Q3

REPORT INFORMATION
  Report Type: 
  Country: None (occurrence: None)
  Receive Date: 20040923
  Receipt Date: 20040614
  Transmission Date: 20050211
  Serious: No
  Sender: FDA-Public Use
  Company Number: USA040259742

PATIENT
  Age: 72 Year
  Sex: Female
  Weight: 52 kg

DRUGS (13)
  1. FORTEO [Suspect]
     Indication: OSTEOPOROSIS
     Dosage: 20 UG/1 DAY
     Dates: start: 20040212
  2. MEDENT [Concomitant]
  3. CALCIUM [Concomitant]
  4. ACTONEL [Concomitant]
  5. ACURPIL (QUINAPRIL) [Concomitant]
  6. ZOCOR [Concomitant]
  7. CLARINEX [Concomitant]
  8. NASONEX [Concomitant]
  9. HONEY [Concomitant]
  10. PROTONIX [Concomitant]
  11. VITAMIN E [Concomitant]
  12. ASPIRIN [Concomitant]
  13. MULTI-VITAMIN [Concomitant]

REACTIONS (8)
  - APATHY [None]
  - COELIAC DISEASE [None]
  - FEELING ABNORMAL [None]
  - HYPOAESTHESIA [None]
  - MUSCLE CRAMP [None]
  - NAUSEA [None]
  - PAIN IN EXTREMITY [None]
  - STOMACH DISCOMFORT [None]
